FAERS Safety Report 6700541-8 (Version None)
Quarter: 2010Q2

REPORT INFORMATION
  Report Type: 
  Country: None (occurrence: None)
  Receive Date: 20100428
  Receipt Date: 20100419
  Transmission Date: 20101027
  Serious: Yes (Disabling)
  Sender: FDA-Public Use
  Company Number: A0855701A

PATIENT
  Age: 32 Year
  Sex: Female

DRUGS (2)
  1. LAMICTAL [Suspect]
     Indication: BIPOLAR DISORDER
     Dosage: 100MG PER DAY
     Route: 048
     Dates: start: 20090301
  2. NO CONCURRENT MEDICATION [Concomitant]

REACTIONS (6)
  - ARTHRALGIA [None]
  - BACK PAIN [None]
  - DRUG EXPOSURE DURING PREGNANCY [None]
  - PAIN IN EXTREMITY [None]
  - RASH [None]
  - URTICARIA [None]
